FAERS Safety Report 14728657 (Version 10)
Quarter: 2018Q3

REPORT INFORMATION
  Report Type: Spontaneous
  Country: KR (occurrence: KR)
  Receive Date: 20180406
  Receipt Date: 20180910
  Transmission Date: 20181010
  Serious: Yes (Hospitalization)
  Sender: FDA-Public Use
  Company Number: KR-CELGENEUS-KOR-20180310332

PATIENT
  Age: 78 Year
  Sex: Female
  Weight: 57.7 kg

DRUGS (60)
  1. DICAMAX [Concomitant]
     Indication: FRACTURE
     Dosage: 1 TABLET
     Route: 048
     Dates: start: 20180104
  2. PROCTOSEDYL [Concomitant]
     Active Substance: DIBUCAINE HYDROCHLORIDE\HYDROCORTISONE
     Indication: HAEMORRHOIDS
     Route: 054
     Dates: start: 20180131
  3. VANCOMYCIN [Concomitant]
     Active Substance: VANCOMYCIN
     Dosage: 5000 MILLIGRAM
     Route: 041
     Dates: start: 20180315
  4. NORVASC [Concomitant]
     Active Substance: AMLODIPINE BESYLATE
     Indication: HYPERTENSION
     Dosage: 5 MILLIGRAM
     Route: 048
     Dates: start: 20180314, end: 20180314
  5. TARIVID [Concomitant]
     Active Substance: OFLOXACIN
     Indication: MUCOSAL HAEMORRHAGE
     Dosage: 1 PUFF
     Route: 061
     Dates: start: 20180319
  6. VANCOZIN [Concomitant]
     Indication: GASTROENTERITIS CLOSTRIDIAL
     Dosage: 1000 MILLIGRAM
     Route: 048
     Dates: start: 20180322
  7. METHYSOL [Concomitant]
     Indication: RASH
     Dosage: 15 MILLIGRAM
     Route: 041
     Dates: start: 20180416, end: 20180416
  8. JANUVIA [Concomitant]
     Active Substance: SITAGLIPTIN PHOSPHATE
     Dosage: 50 MILLIGRAM
     Route: 048
     Dates: start: 20180406
  9. CANCIDAS [Concomitant]
     Active Substance: CASPOFUNGIN ACETATE
     Indication: ASPERGILLUS TEST
     Dosage: 70 MILLIGRAM
     Route: 041
     Dates: start: 20180314, end: 20180314
  10. NORZYME [Concomitant]
     Indication: DYSPEPSIA
     Route: 048
     Dates: start: 20180205
  11. FLASINYL [Concomitant]
     Indication: GASTROENTERITIS CLOSTRIDIAL
     Dosage: 1000 MILLIGRAM
     Route: 048
     Dates: start: 20180313, end: 20180314
  12. PANTOLOC [Concomitant]
     Active Substance: PANTOPRAZOLE SODIUM
     Dosage: 40 MILLIGRAM
     Route: 041
     Dates: start: 20180316
  13. ACLOVA [Concomitant]
     Dosage: 1 PUFF
     Route: 061
     Dates: start: 20180315, end: 20180320
  14. TRIZELE [Concomitant]
     Active Substance: METRONIDAZOLE
     Indication: GASTROENTERITIS CLOSTRIDIAL
     Dosage: 1500 MILLIGRAM
     Route: 041
     Dates: start: 20180315, end: 20180322
  15. AMBISOME [Concomitant]
     Active Substance: AMPHOTERICIN B
     Indication: PROPHYLAXIS
     Dosage: 200 MILLIGRAM
     Route: 041
     Dates: start: 20180319
  16. PLAKON [Concomitant]
     Route: 041
     Dates: start: 20171230
  17. TOPISOL MILK LOTION [Concomitant]
     Indication: RASH
     Dosage: 5 GRAM
     Route: 061
     Dates: start: 20180406
  18. TAMIPOOL [Concomitant]
     Active Substance: VITAMINS
     Indication: VITAMIN SUPPLEMENTATION
     Route: 041
     Dates: start: 20180108
  19. MACPERAN [Concomitant]
     Active Substance: METOCLOPRAMIDE HYDROCHLORIDE
     Indication: PROPHYLAXIS OF NAUSEA AND VOMITING
     Route: 041
     Dates: start: 20180221
  20. MACPERAN [Concomitant]
     Active Substance: METOCLOPRAMIDE HYDROCHLORIDE
     Indication: PROPHYLAXIS OF NAUSEA AND VOMITING
  21. MIRTAPIN [Concomitant]
     Indication: PROPHYLAXIS OF NAUSEA AND VOMITING
  22. MAGMIL [Concomitant]
     Active Substance: MAGNESIUM HYDROXIDE
     Indication: PROPHYLAXIS
     Dosage: 9000 MILLIGRAM
     Route: 048
     Dates: start: 20180114
  23. DUPHALAC [Concomitant]
     Active Substance: LACTULOSE
     Indication: CONSTIPATION PROPHYLAXIS
     Dosage: 45 MILLILITER
     Route: 048
     Dates: start: 20180113
  24. NEUTROGIN [Concomitant]
     Active Substance: LENOGRASTIM
     Indication: PROPHYLAXIS
     Route: 058
     Dates: start: 20180406
  25. MAXIPIME [Concomitant]
     Active Substance: CEFEPIME HYDROCHLORIDE
     Indication: PYREXIA
     Dosage: 6 GRAM
     Route: 041
     Dates: start: 20180308, end: 20180315
  26. AMODIPIN [Concomitant]
     Indication: HYPERTENSION
     Route: 048
     Dates: start: 20180309
  27. CORTISOLU [Concomitant]
     Active Substance: HYDROCORTISONE SODIUM SUCCINATE
     Indication: TRANSFUSION REACTION
     Dosage: 1000 MILLIGRAM
     Route: 041
     Dates: start: 20171230
  28. VITAMIN K?1 [Concomitant]
     Indication: HAEMORRHAGE PROPHYLAXIS
     Route: 041
     Dates: start: 20180101
  29. LIPITOR [Concomitant]
     Active Substance: ATORVASTATIN CALCIUM
     Indication: HYPERLIPIDAEMIA
     Dosage: 20 MILLIGRAM
     Route: 048
     Dates: start: 2003
  30. NEUTROGIN [Concomitant]
     Active Substance: LENOGRASTIM
     Indication: NEUTROPENIA
     Dosage: 350 MICROGRAM
     Route: 058
     Dates: start: 20180305, end: 20180403
  31. PHAZYME [Concomitant]
     Active Substance: DIMETHICONE 410
     Indication: DYSPEPSIA
     Route: 048
     Dates: start: 20180226
  32. TOPISOL MILK LOTION [Concomitant]
     Route: 041
     Dates: start: 20171230
  33. VESICARE [Concomitant]
     Active Substance: SOLIFENACIN SUCCINATE
     Indication: CYSTITIS NONINFECTIVE
     Dosage: 5 MILLIGRAM
     Route: 048
     Dates: start: 20180417
  34. HARNAL [Concomitant]
     Active Substance: TAMSULOSIN HYDROCHLORIDE
     Indication: CYSTITIS NONINFECTIVE
     Dosage: .2 MILLIGRAM
     Route: 048
     Dates: start: 20180423, end: 20180517
  35. CANCIDAS [Concomitant]
     Active Substance: CASPOFUNGIN ACETATE
     Dosage: 50 MILLIGRAM
     Route: 041
     Dates: start: 20180315, end: 20180318
  36. PROCTOSEDYL [Concomitant]
     Active Substance: DIBUCAINE HYDROCHLORIDE\HYDROCORTISONE
     Dosage: 1 PUFF
     Route: 065
     Dates: start: 20180131
  37. ACLOVA [Concomitant]
     Dosage: 1 PUFF
     Route: 061
     Dates: start: 20180315
  38. PLAKON [Concomitant]
     Indication: PRURITUS
     Dosage: 9 MILLIGRAM
     Route: 041
     Dates: start: 20180406
  39. METHYSOL [Concomitant]
     Dosage: 7 MILLIGRAM
     Route: 041
     Dates: start: 20180417, end: 20180418
  40. FURTMAN [Concomitant]
     Indication: BLOOD ELECTROLYTES DECREASED
     Dosage: 2 MILLILITER
     Route: 041
     Dates: start: 20180404, end: 20180404
  41. CALCIUM GLUCONATE. [Concomitant]
     Active Substance: CALCIUM GLUCONATE
     Indication: HYPOCALCAEMIA
     Route: 041
     Dates: start: 20180107
  42. JANUVIA [Concomitant]
     Active Substance: SITAGLIPTIN PHOSPHATE
     Indication: DIABETES MELLITUS
     Dosage: 50 MILLIGRAM
     Route: 048
     Dates: start: 2015, end: 20180315
  43. VANCOMYCIN [Concomitant]
     Active Substance: VANCOMYCIN
     Indication: PROPHYLAXIS
     Dosage: 2 GRAM
     Route: 041
     Dates: start: 20180309, end: 20180314
  44. TRANSAMIN [Concomitant]
     Active Substance: TRANEXAMIC ACID
     Indication: THROMBOCYTOPENIA
     Dosage: 1500 MILLIGRAM
     Route: 048
     Dates: start: 20180313, end: 20180314
  45. PHOSTEN [Concomitant]
     Indication: BLOOD PHOSPHORUS DECREASED
     Route: 041
     Dates: start: 20180121
  46. PHOSTEN [Concomitant]
     Route: 041
     Dates: start: 20180324
  47. METHYSOL [Concomitant]
     Indication: RASH
     Dosage: 31.25 MILLIGRAM
     Route: 041
     Dates: start: 20180407
  48. VENETOCLAX. [Concomitant]
     Active Substance: VENETOCLAX
     Indication: ACUTE MYELOID LEUKAEMIA
     Route: 065
  49. FOLIC ACID. [Concomitant]
     Active Substance: FOLIC ACID
     Indication: FOLATE DEFICIENCY
     Dosage: 1 MILLIGRAM
     Route: 048
     Dates: start: 20171230, end: 20180315
  50. UROKINASE [Concomitant]
     Active Substance: UROKINASE
     Indication: THROMBOSIS PROPHYLAXIS
     Route: 041
     Dates: start: 20180315
  51. GASTER [Concomitant]
     Active Substance: FAMOTIDINE
     Indication: PROPHYLAXIS
     Dosage: 20 MILLIGRAM
     Route: 041
     Dates: start: 20180319, end: 20180323
  52. AZACITIDINE INJECTABLE [Suspect]
     Active Substance: AZACITIDINE
     Indication: ACUTE MYELOID LEUKAEMIA
     Dosage: 75 MILLIGRAM/SQ. METER
     Route: 058
     Dates: start: 20180122, end: 20180226
  53. LETOPRA [Concomitant]
     Indication: PROPHYLAXIS
     Dosage: 10 MILLIGRAM
     Route: 048
     Dates: start: 20171103
  54. MEGACE [Concomitant]
     Active Substance: MEGESTROL ACETATE
     Indication: PROPHYLAXIS
     Dosage: 20 MILLILITER
     Route: 048
     Dates: start: 20180109, end: 20180315
  55. PANTOLOC [Concomitant]
     Active Substance: PANTOPRAZOLE SODIUM
     Indication: PROPHYLAXIS
     Dosage: 40 MILLIGRAM
     Route: 048
     Dates: start: 20180312, end: 20180315
  56. ACLOVA [Concomitant]
     Indication: PERINEAL HAEMATOMA
     Dosage: 750 MILLIGRAM
     Route: 041
     Dates: start: 20180314
  57. TRANEXAMIC ACID. [Concomitant]
     Active Substance: TRANEXAMIC ACID
     Indication: THROMBOCYTOPENIA
     Dosage: 1500 MILLIGRAM
     Route: 041
     Dates: start: 20180314, end: 20180416
  58. KCL [Concomitant]
     Active Substance: POTASSIUM CHLORIDE
     Indication: HYPOKALAEMIA
     Route: 041
     Dates: start: 20180318
  59. FERBON [Concomitant]
     Indication: FOLATE DEFICIENCY
     Dosage: 3 MILLIGRAM
     Route: 041
     Dates: start: 20180316, end: 20180410
  60. MIRTAPIN [Concomitant]
     Indication: PROPHYLAXIS
     Route: 048
     Dates: start: 20180417, end: 20180420

REACTIONS (3)
  - Pneumonia [Recovered/Resolved]
  - Delirium [Recovered/Resolved]
  - Atrial fibrillation [Recovered/Resolved]

NARRATIVE: CASE EVENT DATE: 20180315
